FAERS Safety Report 4421678-2 (Version None)
Quarter: 2004Q3

REPORT INFORMATION
  Report Type: 
  Country: None (occurrence: None)
  Receive Date: 20040804
  Receipt Date: 20040721
  Transmission Date: 20050211
  Serious: Yes (Death)
  Sender: FDA-Public Use
  Company Number: 2004S1000155

PATIENT
  Age: 63 Year
  Sex: Male

DRUGS (12)
  1. CUBICIN [Suspect]
     Indication: DRUG RESISTANCE
     Dosage: 4 MG/KG; Q24H; IV
     Route: 042
     Dates: start: 20031023, end: 20040701
  2. CUBICIN [Suspect]
     Indication: ENDOCARDITIS ENTEROCOCCAL
     Dosage: 4 MG/KG; Q24H; IV
     Route: 042
     Dates: start: 20031023, end: 20040701
  3. FLOMAX [Concomitant]
  4. ALTACE [Concomitant]
  5. TOPROL-XL [Concomitant]
  6. DIGOXIN [Concomitant]
  7. ALDACTONE [Concomitant]
  8. ECOTRIN [Concomitant]
  9. MULTI-VITAMIN [Concomitant]
  10. ULTRACET [Concomitant]
  11. DOXYCYCLINE [Concomitant]
  12. CEFEPIME [Concomitant]

REACTIONS (8)
  - ABDOMINAL PAIN [None]
  - COMPLETED SUICIDE [None]
  - DEPRESSED MOOD [None]
  - GUN SHOT WOUND [None]
  - INTENTIONAL SELF-INJURY [None]
  - METASTASIS [None]
  - MYALGIA [None]
  - WEIGHT DECREASED [None]
